FAERS Safety Report 5117855-8 (Version None)
Quarter: 2006Q3

REPORT INFORMATION
  Report Type: 
  Country: None (occurrence: None)
  Receive Date: 20060929
  Receipt Date: 20060921
  Transmission Date: 20061208
  Serious: Yes (Hospitalization)
  Sender: FDA-Public Use
  Company Number: CA-ABBOTT-06P-028-0344819-00

PATIENT
  Age: 36 Year
  Sex: Female

DRUGS (1)
  1. HUMIRA [Suspect]
     Indication: RHEUMATOID ARTHRITIS
     Route: 058
     Dates: start: 20060817

REACTIONS (3)
  - HAEMOGLOBIN DECREASED [None]
  - HYPERHIDROSIS [None]
  - RHEUMATOID ARTHRITIS [None]
